FAERS Safety Report 4641034-1 (Version None)
Quarter: 2005Q2

REPORT INFORMATION
  Report Type: 
  Country: None (occurrence: None)
  Receive Date: 20050419
  Receipt Date: 20050419
  Transmission Date: 20051028
  Serious: Yes (Other)
  Sender: FDA-Public Use
  Company Number: None

PATIENT
  Age: 51 Year
  Sex: Male
  Weight: 127.0072 kg

DRUGS (9)
  1. GABAPENTIN [Suspect]
     Dosage: 600 MG QD DIVIDED
  2. LASIX [Concomitant]
  3. CODEINE [Concomitant]
  4. GLUCOPHAGE [Concomitant]
  5. ACTOS [Concomitant]
  6. LESCOL [Concomitant]
  7. LOTRIN [Concomitant]
  8. AGGRENOX [Concomitant]
  9. WELCHOL [Concomitant]

REACTIONS (1)
  - OEDEMA PERIPHERAL [None]
